FAERS Safety Report 5788701-4 (Version None)
Quarter: 2008Q2

REPORT INFORMATION
  Report Type: 
  Country: None (occurrence: None)
  Receive Date: 20080626
  Receipt Date: 20080617
  Transmission Date: 20081010
  Serious: Yes (Hospitalization, Other)
  Sender: FDA-Public Use
  Company Number: US-AMGEN-QUU283901

PATIENT
  Sex: Female
  Weight: 77.2 kg

DRUGS (16)
  1. ENBREL [Suspect]
     Indication: ANKYLOSING SPONDYLITIS
     Route: 058
     Dates: start: 20070106
  2. DARVOCET-N 100 [Concomitant]
  3. AMBIEN [Concomitant]
  4. PAXIL [Concomitant]
  5. PRILOSEC [Concomitant]
  6. SINGULAIR [Concomitant]
  7. MAXALT [Concomitant]
  8. AVALIDE [Concomitant]
  9. LOTREL [Concomitant]
  10. POTASSIUM CHLORIDE [Concomitant]
  11. TRIAMTERENE [Concomitant]
  12. ZYRTEC [Concomitant]
  13. NEXIUM [Concomitant]
  14. IBUROFEN [Concomitant]
  15. PHENERGAN HCL [Concomitant]
  16. UNSPECIFIED MEDICATION [Concomitant]

REACTIONS (4)
  - DIARRHOEA [None]
  - LUMBAR SPINAL STENOSIS [None]
  - MUSCULOSKELETAL PAIN [None]
  - SPINAL OSTEOARTHRITIS [None]
